FAERS Safety Report 15798926 (Version 4)
Quarter: 2019Q2

REPORT INFORMATION
  Report Type: Report from Study
  Country: BE (occurrence: BE)
  Receive Date: 20190108
  Receipt Date: 20190621
  Transmission Date: 20190711
  Serious: Yes (Hospitalization, Other)
  Sender: FDA-Public Use
  Company Number: BE-PFIZER INC-2018487316

PATIENT
  Sex: Male
  Weight: 77 kg

DRUGS (8)
  1. IMODIUM [Concomitant]
     Active Substance: LOPERAMIDE HYDROCHLORIDE
     Dosage: UNK
     Route: 065
     Dates: start: 20181002, end: 20181029
  2. RED BLOOD CELLS [Concomitant]
     Active Substance: HUMAN RED BLOOD CELL
     Dosage: UNK
     Route: 065
     Dates: start: 20181102, end: 20181102
  3. LEUCOVORIN [CALCIUM FOLINATE] [Suspect]
     Active Substance: LEUCOVORIN
     Indication: COLORECTAL CANCER METASTATIC
     Dosage: 385 MG, EVERY 2 WEEKS
     Route: 042
     Dates: start: 20181016
  4. PROGOR [Concomitant]
     Active Substance: DILTIAZEM HYDROCHLORIDE
     Dosage: MEDICAL HISTORY
     Route: 065
     Dates: start: 2008
  5. FLUOROURACIL. [Suspect]
     Active Substance: FLUOROURACIL
     Indication: COLORECTAL CANCER METASTATIC
     Dosage: 385 MG, EVERY 2 WEEKS
     Route: 042
     Dates: start: 20181016
  6. FRAXIPARINE [Concomitant]
     Active Substance: NADROPARIN CALCIUM
     Dosage: MEDICAL HISTORY
     Route: 065
     Dates: start: 201710
  7. BEVACIZUMAB. [Suspect]
     Active Substance: BEVACIZUMAB
     Indication: COLORECTAL CANCER METASTATIC
     Dosage: 387.5 MG, EVERY 2 WEEKS
     Route: 042
  8. IRINOTECAN HCL [Suspect]
     Active Substance: IRINOTECAN HYDROCHLORIDE
     Indication: COLORECTAL CANCER METASTATIC
     Dosage: 5750 MG, EVERY 2 WEEKS
     Route: 042
     Dates: start: 20181016

REACTIONS (15)
  - Palmar-plantar erythrodysaesthesia syndrome [Recovered/Resolved]
  - Diarrhoea [Recovered/Resolved]
  - Faecaloma [Recovered/Resolved]
  - Anaemia [Not Recovered/Not Resolved]
  - Mucosal inflammation [Recovered/Resolved]
  - Dry skin [Recovered/Resolved]
  - Polyneuropathy [Recovered/Resolved]
  - Neutropenia [Recovered/Resolved]
  - Hypokalaemia [Unknown]
  - Hyponatraemia [Unknown]
  - Dysgeusia [Not Recovered/Not Resolved]
  - Fatigue [Not Recovered/Not Resolved]
  - Epistaxis [Not Recovered/Not Resolved]
  - Diarrhoea [Recovered/Resolved]
  - Peripheral motor neuropathy [Not Recovered/Not Resolved]

NARRATIVE: CASE EVENT DATE: 20181026
